FAERS Safety Report 5534631-2 (Version None)
Quarter: 2007Q4

REPORT INFORMATION
  Report Type: 
  Country: None (occurrence: None)
  Receive Date: 20071120
  Receipt Date: 20071009
  Transmission Date: 20080405
  Serious: No
  Sender: FDA-Public Use
  Company Number: WAES 0710USA02362

PATIENT
  Age: 69 Year
  Sex: Female

DRUGS (6)
  1. JANUVIA [Suspect]
     Indication: TYPE 2 DIABETES MELLITUS
     Dosage: 100 MG/DAILY/PO
     Route: 048
     Dates: start: 20070401
  2. K-DUR 10 [Concomitant]
  3. LASIX [Concomitant]
  4. LIPITOR [Concomitant]
  5. LOTREL [Concomitant]
  6. SYNTHROID [Concomitant]

REACTIONS (1)
  - WEIGHT INCREASED [None]
